FAERS Safety Report 4361520-1 (Version None)
Quarter: 2004Q2

REPORT INFORMATION
  Report Type: 
  Country: None (occurrence: None)
  Receive Date: 20040521
  Receipt Date: 20040129
  Transmission Date: 20050107
  Serious: Yes (Hospitalization)
  Sender: FDA-Public Use
  Company Number: US-GLAXOSMITHKLINE-A0496019B

PATIENT
  Age: 63 Year
  Sex: Female

DRUGS (2)
  1. ZYBAN [Suspect]
     Dates: end: 20040101
  2. NICODERM [Concomitant]
     Dates: start: 20031101, end: 20040101

REACTIONS (2)
  - CEREBROVASCULAR ACCIDENT [None]
  - CONVULSION [None]
